FAERS Safety Report 11653382 (Version 1)
Quarter: 2015Q4

REPORT INFORMATION
  Report Type: Spontaneous
  Country: DK (occurrence: FR)
  Receive Date: 20151022
  Receipt Date: 20151022
  Transmission Date: 20160304
  Serious: Yes (Other)
  Sender: FDA-Public Use
  Company Number: FR-FRI-1000080373

PATIENT
  Age: 57 Year
  Sex: Male

DRUGS (10)
  1. IMIPENEM AND CILASTATIN [Suspect]
     Active Substance: CILASTATIN SODIUM\IMIPENEM
     Indication: KLEBSIELLA SEPSIS
     Route: 042
     Dates: start: 20150817, end: 20150901
  2. AMIKACINE [Concomitant]
     Active Substance: AMIKACIN
     Indication: PRODUCT USED FOR UNKNOWN INDICATION
     Route: 065
     Dates: start: 20150820
  3. FLUCONAZOLE KABI [Suspect]
     Active Substance: FLUCONAZOLE
     Indication: CANDIDA SEPSIS
     Dosage: 800 MG
     Route: 042
     Dates: start: 20150819, end: 20150904
  4. RIFADINE [Concomitant]
     Active Substance: RIFAMPIN
     Indication: PRODUCT USED FOR UNKNOWN INDICATION
     Route: 065
  5. INEXIUM [Suspect]
     Active Substance: ESOMEPRAZOLE
     Indication: PRODUCT USED FOR UNKNOWN INDICATION
     Dosage: 20 MG
     Route: 048
     Dates: start: 20150814, end: 20150831
  6. CANCIDAS [Suspect]
     Active Substance: CASPOFUNGIN ACETATE
     Indication: CANDIDA SEPSIS
     Dosage: 1 DOSAGE FORM
     Route: 042
     Dates: start: 20150803, end: 20150819
  7. ZYVOXID [Concomitant]
     Active Substance: LINEZOLID
     Indication: PRODUCT USED FOR UNKNOWN INDICATION
     Route: 065
     Dates: start: 20150820
  8. VANCOMYCINE [Concomitant]
     Active Substance: VANCOMYCIN
     Indication: PRODUCT USED FOR UNKNOWN INDICATION
     Route: 065
     Dates: start: 20150819, end: 20150819
  9. ESCITALOPRAM [Suspect]
     Active Substance: ESCITALOPRAM OXALATE
     Indication: PRODUCT USED FOR UNKNOWN INDICATION
     Dosage: 5 MG
     Route: 048
     Dates: start: 20150814, end: 20150828
  10. ANCOTIL [Suspect]
     Active Substance: FLUCYTOSINE
     Indication: CANDIDA SEPSIS
     Dosage: 1900 MG
     Route: 042
     Dates: start: 20150819, end: 20150831

REACTIONS (1)
  - Pancytopenia [Recovering/Resolving]

NARRATIVE: CASE EVENT DATE: 20150820
